FAERS Safety Report 25588339 (Version 1)
Quarter: 2025Q3

REPORT INFORMATION
  Report Type: Spontaneous
  Country: CN (occurrence: CN)
  Receive Date: 20250722
  Receipt Date: 20250722
  Transmission Date: 20251021
  Serious: Yes (Other)
  Sender: BEIGENE
  Company Number: CN-BEIGENE-BGN-2025-011642

PATIENT
  Age: 73 Year
  Weight: 75 kg

DRUGS (4)
  1. TISLELIZUMAB [Suspect]
     Active Substance: TISLELIZUMAB
     Indication: Renal cancer
     Dosage: 200 MILLIGRAM, Q3WK D1
  2. TISLELIZUMAB [Suspect]
     Active Substance: TISLELIZUMAB
     Indication: Ureteric cancer
     Dosage: 200 MILLIGRAM, Q3WK D1
  3. PARAPLATIN [Concomitant]
     Active Substance: CARBOPLATIN
     Indication: Renal cancer
     Dosage: 370 MILLIGRAM, Q3WK D1
  4. PARAPLATIN [Concomitant]
     Active Substance: CARBOPLATIN
     Indication: Ureteric cancer
     Dosage: 370 MILLIGRAM, Q3WK D1

REACTIONS (1)
  - Myelosuppression [Unknown]
